FAERS Safety Report 8609615 (Version 2)
Quarter: 2013Q3

REPORT INFORMATION
  Report Type: Spontaneous
  Country: US (occurrence: US)
  Receive Date: 20120612
  Receipt Date: 20130725
  Transmission Date: 20140515
  Serious: No
  Sender: FDA-Public Use
  Company Number: US-ASTRAZENECA-2012SE34773

PATIENT
  Sex: Female

DRUGS (6)
  1. NEXIUM [Suspect]
     Indication: GASTRIC DISORDER
     Dosage: ONCE OR TWICE A DAY FOR YEARS
     Route: 048
  2. PEPCID [Concomitant]
  3. METHIMAZOLE [Concomitant]
     Indication: THYROID DISORDER
  4. ORVASTATIN [Concomitant]
     Indication: BLOOD CHOLESTEROL ABNORMAL
  5. CLOPIDOGREL [Concomitant]
     Indication: CARDIAC DISORDER
  6. MEGESTROL [Concomitant]
     Indication: DECREASED APPETITE

REACTIONS (7)
  - Osteoporosis [Unknown]
  - Multiple fractures [Unknown]
  - Bone disorder [Unknown]
  - Aortic disorder [Unknown]
  - Arthritis [Unknown]
  - Calcium deficiency [Unknown]
  - Vitamin D deficiency [Unknown]
